FAERS Safety Report 6580158-9 (Version None)
Quarter: 2010Q1

REPORT INFORMATION
  Report Type: 
  Country: None (occurrence: None)
  Receive Date: 20100212
  Receipt Date: 20100204
  Transmission Date: 20100710
  Serious: Yes (Hospitalization)
  Sender: FDA-Public Use
  Company Number: GR-ROCHE-678620

PATIENT
  Sex: Female
  Weight: 93 kg

DRUGS (7)
  1. TOCILIZUMAB [Suspect]
     Indication: RHEUMATOID ARTHRITIS
     Dosage: STARTING DOSE: 8 MG/KG
     Route: 042
     Dates: start: 20090922
  2. TOCILIZUMAB [Suspect]
     Route: 042
     Dates: start: 20091027
  3. TOCILIZUMAB [Suspect]
     Route: 042
     Dates: start: 20091126
  4. TOCILIZUMAB [Suspect]
     Dosage: INCREASED DOSAGE; PERMANENTLY DISCONTINUED.
     Route: 042
     Dates: start: 20091222, end: 20091222
  5. METHOTREXATE [Concomitant]
     Route: 048
     Dates: start: 20070301
  6. FILICINE [Concomitant]
     Dosage: NAME RPTD AS ^FILICIN^
     Dates: start: 20070301
  7. LEVOTHYROXINE SODIUM [Concomitant]
     Dates: start: 20050101

REACTIONS (3)
  - BREAST CANCER [None]
  - BREAST CANCER STAGE II [None]
  - OESTROGEN RECEPTOR ASSAY POSITIVE [None]
